FAERS Safety Report 24872446 (Version 1)
Quarter: 2025Q1

REPORT INFORMATION
  Report Type: Spontaneous
  Country: US (occurrence: US)
  Receive Date: 20250122
  Receipt Date: 20250122
  Transmission Date: 20250409
  Serious: Yes (Death)
  Sender: ALKEM
  Company Number: US-ALKEM LABORATORIES LIMITED-US-ALKEM-2024-12237

PATIENT
  Age: 17 Year
  Sex: Male

DRUGS (8)
  1. MORPHINE SULFATE [Suspect]
     Active Substance: MORPHINE SULFATE
     Indication: Product used for unknown indication
     Route: 065
  2. DESPROPIONYLFENTANYL [Suspect]
     Active Substance: DESPROPIONYLFENTANYL
     Indication: Product used for unknown indication
     Route: 065
  3. DIPHENHYDRAMINE [Suspect]
     Active Substance: DIPHENHYDRAMINE
     Indication: Product used for unknown indication
     Route: 065
  4. FENTANYL [Suspect]
     Active Substance: FENTANYL
     Indication: Product used for unknown indication
     Route: 065
  5. FLUALPRAZOLAM [Suspect]
     Active Substance: FLUALPRAZOLAM
     Indication: Product used for unknown indication
     Route: 065
  6. 6-ACETYLMORPHINE [Suspect]
     Active Substance: 6-ACETYLMORPHINE
     Indication: Product used for unknown indication
     Route: 065
  7. NALOXONE [Suspect]
     Active Substance: NALOXONE
     Indication: Product used for unknown indication
     Route: 065
  8. VALERYL FENTANYL [Suspect]
     Active Substance: VALERYL FENTANYL
     Indication: Product used for unknown indication
     Route: 065

REACTIONS (3)
  - Toxicity to various agents [Fatal]
  - Prescription drug used without a prescription [Fatal]
  - Overdose [Fatal]
